FAERS Safety Report 9041386 (Version 1)
Quarter: 2013Q1

REPORT INFORMATION
  Report Type: Spontaneous
  Country: US (occurrence: None)
  Receive Date: 20130125
  Receipt Date: 20130125
  Transmission Date: 20140127
  Serious: No
  Sender: FDA-Public Use
  Company Number: None

PATIENT
  Age: 10 Year
  Sex: Male

DRUGS (1)
  1. GEODON [Suspect]
     Indication: BIPOLAR DISORDER
     Dosage: GEODON 20MG  ONE AM,  ONE NOON  ORAL
     Route: 048
     Dates: start: 201203, end: 201205

REACTIONS (2)
  - Abnormal behaviour [None]
  - Product substitution issue [None]
